FAERS Safety Report 4946322-7 (Version None)
Quarter: 2006Q1

REPORT INFORMATION
  Report Type: 
  Country: None (occurrence: None)
  Receive Date: 20060316
  Receipt Date: 20060316
  Transmission Date: 20060701
  Serious: Yes (Life-Threatening, Hospitalization)
  Sender: FDA-Public Use
  Company Number: None

PATIENT
  Age: 84 Year
  Sex: Male
  Weight: 64.9 kg

DRUGS (12)
  1. CLOPIDOGREL [Suspect]
  2. GUAIFENSIN [Concomitant]
  3. FERROUS SULFATE TAB [Concomitant]
  4. PAROXETINE HCL [Concomitant]
  5. EVOTHYROXINE NA (SYNTHROID) [Concomitant]
  6. TENOLOL [Concomitant]
  7. ERAZOSIN HCL [Concomitant]
  8. ONTELUKAST NA [Concomitant]
  9. IACIN (NIASPAN-KOS) [Concomitant]
  10. IMVASTATIN [Concomitant]
  11. ONEPEZIL HCL [Concomitant]
  12. ISINOPRIL [Concomitant]

REACTIONS (1)
  - GASTROINTESTINAL HAEMORRHAGE [None]
